FAERS Safety Report 25778420 (Version 2)
Quarter: 2025Q3

REPORT INFORMATION
  Report Type: Spontaneous
  Country: US (occurrence: US)
  Receive Date: 20250909
  Receipt Date: 20250915
  Transmission Date: 20251020
  Serious: Yes (Other)
  Sender: ROCHE
  Company Number: US-ROCHE-10000376740

PATIENT
  Sex: Female

DRUGS (2)
  1. ZELBORAF [Suspect]
     Active Substance: VEMURAFENIB
     Indication: Histiocytosis
     Route: 048
     Dates: start: 202209
  2. ZELBORAF [Suspect]
     Active Substance: VEMURAFENIB
     Indication: Metabolic disorder
     Route: 048
     Dates: start: 202302

REACTIONS (1)
  - Malignant neoplasm of eye [Unknown]
